FAERS Safety Report 7656380-7 (Version None)
Quarter: 2011Q3

REPORT INFORMATION
  Report Type: 
  Country: None (occurrence: None)
  Receive Date: 20110804
  Receipt Date: 20110706
  Transmission Date: 20111222
  Serious: Yes (Other)
  Sender: FDA-Public Use
  Company Number: CA-GLAXOSMITHKLINE-A0935047A

PATIENT
  Sex: Female

DRUGS (5)
  1. MAXERAN [Concomitant]
  2. TYKERB [Suspect]
     Indication: BREAST CANCER METASTATIC
     Dosage: 1500MG PER DAY
     Route: 048
     Dates: start: 20110518, end: 20110728
  3. LETROZOLE [Concomitant]
     Indication: BREAST CANCER STAGE IV
     Dosage: 2.5MG PER DAY
     Route: 048
     Dates: start: 20110518
  4. DECADRON [Concomitant]
  5. TYLENOL-500 [Concomitant]

REACTIONS (7)
  - EPISTAXIS [None]
  - ERYTHEMA [None]
  - NEOPLASM MALIGNANT [None]
  - METASTASES TO BONE [None]
  - CONSTIPATION [None]
  - METASTASES TO LIVER [None]
  - DRY SKIN [None]
